FAERS Safety Report 20151181 (Version 1)
Quarter: 2021Q4

REPORT INFORMATION
  Report Type: Spontaneous
  Country: ES (occurrence: None)
  Receive Date: 20211206
  Receipt Date: 20211206
  Transmission Date: 20220303
  Serious: Yes (Other)
  Sender: FDA-Public Use
  Company Number: ES-Fresenius Kabi-FK202113339

PATIENT
  Age: 42 Year
  Sex: Male

DRUGS (6)
  1. EPHEDRINE [Suspect]
     Active Substance: EPHEDRINE
     Indication: Muscular weakness
     Route: 065
  2. EPHEDRINE [Suspect]
     Active Substance: EPHEDRINE
     Route: 065
  3. EPHEDRINE [Suspect]
     Active Substance: EPHEDRINE
     Route: 065
  4. PYRIDOSTIGMINE [Suspect]
     Active Substance: PYRIDOSTIGMINE
     Indication: Muscular weakness
     Route: 048
  5. PYRIDOSTIGMINE [Suspect]
     Active Substance: PYRIDOSTIGMINE
     Route: 048
  6. AMIFAMPRIDINE [Suspect]
     Active Substance: AMIFAMPRIDINE
     Indication: Muscular weakness
     Route: 065

REACTIONS (3)
  - Tachycardia [Recovered/Resolved]
  - Hypertension [Recovered/Resolved]
  - Off label use [Unknown]
